FAERS Safety Report 21351441 (Version 1)
Quarter: 2022Q3

REPORT INFORMATION
  Report Type: Spontaneous
  Country: DE (occurrence: DE)
  Receive Date: 20220919
  Receipt Date: 20220919
  Transmission Date: 20221027
  Serious: Yes (Hospitalization)
  Sender: FDA-Public Use
  Company Number: DE-ADRED-05734-01

PATIENT
  Age: 72 Year
  Sex: Male
  Weight: 87 kg

DRUGS (4)
  1. ENOXAPARIN SODIUM [Suspect]
     Active Substance: ENOXAPARIN SODIUM
     Dosage: 20 MG, 0-0-2-0, PRE-FILLED SYRINGES
     Route: 058
  2. MITOMYCIN [Suspect]
     Active Substance: MITOMYCIN
     Dosage: 20 MG, ACCORDING TO THE SCHEME
     Route: 043
  3. METAMIZOLE [Concomitant]
     Active Substance: METAMIZOLE
     Dosage: 750 MG, 1-1-1-1, DROPS
     Route: 048
  4. PANTOPRAZOLE [Concomitant]
     Active Substance: PANTOPRAZOLE
     Dosage: 20 MG, 1-0-0-0, PROLONGED-RELEASE TABLETS
     Route: 048

REACTIONS (2)
  - Nocturia [Recovering/Resolving]
  - Haematuria [Recovering/Resolving]
